FAERS Safety Report 9230053 (Version 2)
Quarter: 2013Q2

REPORT INFORMATION
  Report Type: Spontaneous
  Country: BR (occurrence: BR)
  Receive Date: 20130415
  Receipt Date: 20130415
  Transmission Date: 20140414
  Serious: Yes (Hospitalization)
  Sender: FDA-Public Use
  Company Number: BR-BAYER-2013-044205

PATIENT
  Age: 27 Year
  Sex: Female
  Weight: 58 kg

DRUGS (2)
  1. YAZ (24) [Suspect]
     Indication: CONTRACEPTION
     Dosage: UNK
     Route: 048
     Dates: start: 201209, end: 20130405
  2. YAZ (24) [Suspect]
     Indication: MENSTRUAL CYCLE MANAGEMENT

REACTIONS (5)
  - Vasodilatation [Not Recovered/Not Resolved]
  - Muscular weakness [Not Recovered/Not Resolved]
  - Chest pain [Not Recovered/Not Resolved]
  - Syncope [Not Recovered/Not Resolved]
  - Asthenia [Not Recovered/Not Resolved]
